FAERS Safety Report 8410117-2 (Version None)
Quarter: 2012Q2

REPORT INFORMATION
  Report Type: 
  Country: None (occurrence: None)
  Receive Date: 20120323
  Receipt Date: 20110928
  Transmission Date: 20120825
  Serious: Yes (Hospitalization, Other)
  Sender: FDA-Public Use
  Company Number: 163-21880-11093632

PATIENT
  Age: 68 Year
  Sex: Female
  Weight: 86.637 kg

DRUGS (17)
  1. NORVASC [Concomitant]
  2. DILAUDID (HYDROMORPHONE HYDROCHLORIDE) (UNKNOWN) [Concomitant]
  3. ACYCLOVIR (ACICLOVIR) (UNKNOWN) [Concomitant]
  4. OXYCONTIN [Concomitant]
  5. LISINOPRIL [Concomitant]
  6. CRESTOR (ROSUVASTATIN) (UNKNOWN) [Concomitant]
  7. ALBUTEROL (SALBUTAMOL) (UNKNOWN) [Concomitant]
  8. VALACYCLOVIR (VALACICLOVIR HYDROCHLORIDE) (UNKNOWN) [Concomitant]
  9. AMBIEN [Concomitant]
  10. AREDIA [Concomitant]
  11. LASIX [Concomitant]
  12. LEVEMIR (INSULIN DETEMIR) (UNKNOWN) [Concomitant]
  13. REVLIMID [Suspect]
     Indication: MULTIPLE MYELOMA
     Dosage: 25 MG, 1 IN 1 D, PO 20 MG, 2 IN 1 D, PO 25 MG, MON. + THURS., PO 25 MG, MON. + THURS., PO
     Route: 048
     Dates: start: 20100201
  14. REVLIMID [Suspect]
     Indication: MULTIPLE MYELOMA
     Dosage: 25 MG, 1 IN 1 D, PO 20 MG, 2 IN 1 D, PO 25 MG, MON. + THURS., PO 25 MG, MON. + THURS., PO
     Route: 048
     Dates: start: 20110201
  15. REVLIMID [Suspect]
     Indication: MULTIPLE MYELOMA
     Dosage: 25 MG, 1 IN 1 D, PO 20 MG, 2 IN 1 D, PO 25 MG, MON. + THURS., PO 25 MG, MON. + THURS., PO
     Route: 048
     Dates: start: 20091201
  16. REVLIMID [Suspect]
     Indication: MULTIPLE MYELOMA
     Dosage: 25 MG, 1 IN 1 D, PO 20 MG, 2 IN 1 D, PO 25 MG, MON. + THURS., PO 25 MG, MON. + THURS., PO
     Route: 048
     Dates: start: 20100901
  17. ASPIRIN [Concomitant]

REACTIONS (2)
  - RENAL FAILURE [None]
  - FULL BLOOD COUNT [None]
